FAERS Safety Report 9532035 (Version 1)
Quarter: 2013Q3

REPORT INFORMATION
  Report Type: Spontaneous
  Country: US (occurrence: None)
  Receive Date: 20130917
  Receipt Date: 20130917
  Transmission Date: 20140515
  Serious: Yes (Death, Disabling)
  Sender: FDA-Public Use
  Company Number: None

PATIENT
  Age: 54 Year
  Sex: Female
  Weight: 76.2 kg

DRUGS (13)
  1. AMPYRA [Suspect]
     Indication: MULTIPLE SCLEROSIS
     Dosage: 1 TAB, TWICE DAILY 12HR APART
     Route: 048
     Dates: start: 20100406, end: 20100417
  2. AMANTADINE [Suspect]
  3. AMITRIPTYLINE [Suspect]
  4. ATENOLOL [Suspect]
  5. BACLOFEN [Suspect]
     Dosage: 2 TABS
  6. HYDROCHLOROTHIAZIDE [Suspect]
  7. LISINOPRIL [Suspect]
  8. OMEPRAZOLE [Suspect]
  9. PRAVASTATIN [Suspect]
  10. GABAPENTIN [Suspect]
  11. MULTIVITAMIN [Concomitant]
  12. CALCIUM WITH VITAMIN D [Concomitant]
  13. ASPIRIN [Concomitant]

REACTIONS (3)
  - Convulsion [None]
  - Renal failure [None]
  - Catheter site haemorrhage [None]
